FAERS Safety Report 16100196 (Version 5)
Quarter: 2023Q2

REPORT INFORMATION
  Report Type: Spontaneous
  Country: IT (occurrence: IT)
  Receive Date: 20190321
  Receipt Date: 20230407
  Transmission Date: 20230722
  Serious: Yes (Other)
  Sender: FDA-Public Use
  Company Number: IT-MYLANLABS-2008S1013789

PATIENT
  Age: 23 Year
  Sex: Male

DRUGS (15)
  1. MESALAMINE [Suspect]
     Active Substance: MESALAMINE
     Indication: Colitis
     Dosage: 2.4 GRAM, QD (DAILY) (??-MAY-2006)
     Route: 048
     Dates: end: 200605
  2. MESALAMINE [Suspect]
     Active Substance: MESALAMINE
     Indication: Colitis ulcerative
     Dosage: 2.4 GRAM, QD
     Route: 048
     Dates: start: 2006
  3. MESALAMINE [Suspect]
     Active Substance: MESALAMINE
     Indication: Proctitis ulcerative
     Dosage: UNK
     Route: 065
  4. MESALAMINE [Suspect]
     Active Substance: MESALAMINE
     Dosage: 2.4 GRAM, QD
     Route: 048
     Dates: start: 200603, end: 200604
  5. MESALAMINE [Suspect]
     Active Substance: MESALAMINE
     Dosage: UNK (TOTAL DAILY DOSES)
     Route: 048
     Dates: end: 200604
  6. MESALAMINE [Suspect]
     Active Substance: MESALAMINE
     Dosage: UNK (TOTAL DAILY DOSES)
     Route: 048
     Dates: start: 200605
  7. MESALAMINE [Suspect]
     Active Substance: MESALAMINE
     Dosage: 400 MILLIGRAM
     Route: 048
     Dates: start: 2006, end: 200604
  8. MESALAMINE [Suspect]
     Active Substance: MESALAMINE
     Dosage: 250 MILLIGRAM
     Route: 048
     Dates: start: 200605
  9. MESALAMINE [Concomitant]
     Active Substance: MESALAMINE
     Indication: Colitis ulcerative
     Dosage: UNK
     Route: 061
  10. MESALAMINE [Concomitant]
     Active Substance: MESALAMINE
     Dosage: UNK
     Route: 054
     Dates: start: 200602, end: 200604
  11. MESALAMINE [Concomitant]
     Active Substance: MESALAMINE
     Dosage: UNK
     Route: 054
     Dates: start: 200111
  12. MESALAMINE [Concomitant]
     Active Substance: MESALAMINE
     Dosage: 2.4 GRAM, QD
     Route: 065
  13. MESALAMINE [Concomitant]
     Active Substance: MESALAMINE
     Indication: Proctitis ulcerative
     Dosage: UNK
     Route: 054
     Dates: start: 200111
  14. MESALAMINE [Concomitant]
     Active Substance: MESALAMINE
     Indication: Colitis ulcerative
     Dosage: UNK
     Route: 054
     Dates: start: 200602, end: 200604
  15. MESALAMINE [Concomitant]
     Active Substance: MESALAMINE
     Dosage: UNK
     Route: 061

REACTIONS (5)
  - Pleurisy [Recovered/Resolved]
  - Pleural effusion [Recovered/Resolved]
  - Drug ineffective [Unknown]
  - Cross sensitivity reaction [Recovered/Resolved]
  - Off label use [Unknown]

NARRATIVE: CASE EVENT DATE: 20060201
